FAERS Safety Report 9155997 (Version 1)
Quarter: 2013Q1

REPORT INFORMATION
  Report Type: Spontaneous
  Country: US (occurrence: US)
  Receive Date: 20130311
  Receipt Date: 20130311
  Transmission Date: 20140127
  Serious: Yes (Death, Hospitalization, Other)
  Sender: FDA-Public Use
  Company Number: US-AMGEN-USASP2013014976

PATIENT
  Age: 0 None
  Sex: Female

DRUGS (4)
  1. ENBREL [Suspect]
     Indication: RHEUMATOID ARTHRITIS
     Dosage: 50 MG, QWK
     Route: 064
     Dates: start: 1999
  2. ENBREL [Suspect]
     Indication: RHEUMATOID ARTHRITIS
     Dosage: 50 MG, QWK
     Route: 064
     Dates: start: 1999
  3. ENBREL [Suspect]
     Indication: PSORIASIS
  4. ENBREL [Suspect]
     Indication: PSORIASIS

REACTIONS (5)
  - Congenital heart valve disorder [Recovered/Resolved]
  - Congenital aortic anomaly [Recovered/Resolved]
  - Low birth weight baby [Unknown]
  - Placental transfusion syndrome [Recovered/Resolved]
  - Pneumonia [Fatal]
